FAERS Safety Report 16926679 (Version 1)
Quarter: 2019Q4

REPORT INFORMATION
  Report Type: Spontaneous
  Country: US (occurrence: US)
  Receive Date: 20191016
  Receipt Date: 20191016
  Transmission Date: 20200122
  Serious: No
  Sender: FDA-Public Use
  Company Number: US-SA-2019SA282980

PATIENT
  Age: 70 Year
  Sex: Female

DRUGS (4)
  1. ALLEGRA [Suspect]
     Active Substance: FEXOFENADINE HYDROCHLORIDE
     Indication: SNEEZING
  2. PRILOSEC [Concomitant]
     Active Substance: OMEPRAZOLE MAGNESIUM
  3. ALLEGRA [Suspect]
     Active Substance: FEXOFENADINE HYDROCHLORIDE
     Indication: SINUS CONGESTION
  4. ALLEGRA [Suspect]
     Active Substance: FEXOFENADINE HYDROCHLORIDE
     Indication: RHINORRHOEA
     Dosage: 1 DF, QD
     Route: 065

REACTIONS (2)
  - Insomnia [Unknown]
  - Therapeutic product effect incomplete [Unknown]
